FAERS Safety Report 9714139 (Version 2)
Quarter: 2015Q3

REPORT INFORMATION
  Report Type: Spontaneous
  Country: US (occurrence: US)
  Receive Date: 20131126
  Receipt Date: 20150803
  Transmission Date: 20151125
  Serious: No
  Sender: FDA-Public Use
  Company Number: US-GILEAD-2008-0018712

PATIENT
  Age: 86 Year
  Sex: Male
  Weight: 78.02 kg

DRUGS (9)
  1. LETAIRIS [Suspect]
     Active Substance: AMBRISENTAN
     Indication: COR PULMONALE CHRONIC
     Route: 048
     Dates: start: 20081010
  2. ALPRAZOLAM. [Concomitant]
     Active Substance: ALPRAZOLAM
  3. BOOST ENERGY DRINK [Concomitant]
  4. RHINOCORT AQ NASAL SPRAY [Concomitant]
  5. SINGULAIR [Concomitant]
     Active Substance: MONTELUKAST SODIUM
  6. LASIX [Concomitant]
     Active Substance: FUROSEMIDE
  7. DIOVAN [Concomitant]
     Active Substance: VALSARTAN
  8. PRILOSEC [Concomitant]
     Active Substance: OMEPRAZOLE MAGNESIUM
  9. CRESTOR [Concomitant]
     Active Substance: ROSUVASTATIN CALCIUM

REACTIONS (2)
  - Fluid retention [None]
  - Dyspnoea [None]
